FAERS Safety Report 10218126 (Version 1)
Quarter: 2014Q2

REPORT INFORMATION
  Report Type: Spontaneous
  Country: US (occurrence: US)
  Receive Date: 20140605
  Receipt Date: 20140605
  Transmission Date: 20141212
  Serious: No
  Sender: FDA-Public Use
  Company Number: US-BIOGENIDEC-2014BI047777

PATIENT
  Age: 74 Year
  Sex: Male

DRUGS (3)
  1. TECFIDERA [Suspect]
     Indication: RELAPSING-REMITTING MULTIPLE SCLEROSIS
     Dates: start: 201403
  2. BABY ASPRIN [Concomitant]
  3. FISH OIL [Concomitant]

REACTIONS (2)
  - Heart rate increased [Not Recovered/Not Resolved]
  - Urinary incontinence [Not Recovered/Not Resolved]
